FAERS Safety Report 19828004 (Version 1)
Quarter: 2021Q3

REPORT INFORMATION
  Report Type: Spontaneous
  Country: SE (occurrence: SE)
  Receive Date: 20210914
  Receipt Date: 20210914
  Transmission Date: 20211014
  Serious: Yes (Disabling, Other)
  Sender: FDA-Public Use
  Company Number: SE-TEVA-2021-SE-1952354

PATIENT
  Age: 67 Year
  Sex: Female

DRUGS (5)
  1. PREDNISOLONE. [Suspect]
     Active Substance: PREDNISOLONE
     Indication: PACHYMENINGITIS
     Dosage: MODERATE TO HIGH DOSES
     Route: 065
  2. PREDNISOLONE. [Suspect]
     Active Substance: PREDNISOLONE
     Dosage: WORSENING OF HER CEREBRAL SYMPTOMS WAS NOTED AT TAPERING PREDNISOLONE TO DOSE UNDER 10 MG/DAY
     Route: 065
  3. METHOTREXATE. [Suspect]
     Active Substance: METHOTREXATE
     Indication: PACHYMENINGITIS
     Route: 065
  4. BETAMETHASONE. [Suspect]
     Active Substance: BETAMETHASONE
     Indication: PACHYMENINGITIS
     Dosage: MODERATE TO HIGH DOSES
     Route: 065
  5. RITUXIMAB. [Suspect]
     Active Substance: RITUXIMAB
     Indication: PACHYMENINGITIS
     Dosage: 500?1000 MG AS ONE DOSE GIVEN 1 OR 2 TIMES YEAR
     Route: 065

REACTIONS (6)
  - Weight increased [Unknown]
  - Therapeutic product effect incomplete [Unknown]
  - Cushingoid [Unknown]
  - Blindness [Unknown]
  - Cataract [Unknown]
  - Glaucoma [Unknown]
